FAERS Safety Report 5128594-1 (Version None)
Quarter: 2006Q4

REPORT INFORMATION
  Report Type: 
  Country: None (occurrence: None)
  Receive Date: 20061017
  Receipt Date: 20060927
  Transmission Date: 20070319
  Serious: Yes (Disabling)
  Sender: FDA-Public Use
  Company Number: DE-GLAXOSMITHKLINE-D0051055A

PATIENT
  Age: 5 Month
  Sex: Male
  Weight: 7.4 kg

DRUGS (3)
  1. ELOBACT [Suspect]
     Indication: PROPHYLAXIS
     Dosage: 37.5MG PER DAY
     Route: 048
     Dates: start: 20060415, end: 20060929
  2. FLUORIDE TAB [Concomitant]
     Indication: PROPHYLAXIS
     Route: 048
     Dates: start: 20060412, end: 20060929
  3. VITAMIN D [Concomitant]
     Route: 048
     Dates: start: 20060412, end: 20060929

REACTIONS (1)
  - NEPHROLITHIASIS [None]
